FAERS Safety Report 24945396 (Version 1)
Quarter: 2025Q1

REPORT INFORMATION
  Report Type: Spontaneous
  Country: US (occurrence: US)
  Receive Date: 20250209
  Receipt Date: 20250209
  Transmission Date: 20250409
  Serious: No
  Sender: TARO
  Company Number: US-TARO PHARMACEUTICALS USA INC.-2025TAR00117

PATIENT
  Age: 15 Year
  Sex: Female

DRUGS (1)
  1. ADAPALENE [Suspect]
     Active Substance: ADAPALENE
     Indication: Acne
     Dosage: SUCH A LITTLE PEA SIZE, OD
     Route: 061
     Dates: start: 202405, end: 202412

REACTIONS (2)
  - Drug ineffective [Unknown]
  - Dry skin [Recovered/Resolved]
